FAERS Safety Report 4617510-4 (Version None)
Quarter: 2005Q1

REPORT INFORMATION
  Report Type: 
  Country: None (occurrence: None)
  Receive Date: 20050322
  Receipt Date: 20050217
  Transmission Date: 20050727
  Serious: Yes (Death)
  Sender: FDA-Public Use
  Company Number: 2005S1000589

PATIENT
  Age: 67 Year
  Sex: Male

DRUGS (13)
  1. CLOZAPINE [Suspect]
     Indication: SCHIZOPHRENIA
     Dosage: 25 MG; QAM; PO; 37.5 MG; HS; PO
     Route: 048
     Dates: start: 20020601, end: 20020202
  2. CLOZAPINE [Suspect]
     Indication: SCHIZOPHRENIA
     Dosage: 25 MG; QAM; PO; 37.5 MG; HS; PO
     Route: 048
     Dates: start: 20020601, end: 20050202
  3. CALCITONIN-SALMON [Concomitant]
  4. LORAZEPAM [Concomitant]
  5. PARACETAMOL/HYDROCODONE BITARTRATE [Concomitant]
  6. PHENYTOIN SODIUM [Concomitant]
  7. LANSOPRAZOLE [Concomitant]
  8. PAROXETINE HYDROCHLORIDE [Concomitant]
  9. MIDODRINE HYDROCHLORIDE [Concomitant]
  10. SELEGILINE HCL [Concomitant]
  11. CARBIDOPA AND LEVODOPA [Concomitant]
  12. MORPHINE 20MG/ML SOLUTION [Concomitant]
  13. IBUPROFEN [Concomitant]

REACTIONS (1)
  - DEATH [None]
